FAERS Safety Report 4893528-1 (Version None)
Quarter: 2005Q4

REPORT INFORMATION
  Report Type: 
  Country: None (occurrence: None)
  Receive Date: 20051223
  Receipt Date: 20050519
  Transmission Date: 20060501
  Serious: Yes (Other)
  Sender: FDA-Public Use
  Company Number: PHEH2005US05759

PATIENT
  Age: 34 Year
  Sex: Male

DRUGS (3)
  1. CLOZARIL [Suspect]
     Indication: SCHIZOAFFECTIVE DISORDER
     Dosage: 600  MG, ORAL
     Route: 048
  2. TRAZODONE (TRAZODONE) [Concomitant]
  3. LITHIUM CARBONATE [Concomitant]

REACTIONS (2)
  - ABDOMINAL DISCOMFORT [None]
  - CONVULSION [None]
